FAERS Safety Report 6245070-3 (Version None)
Quarter: 2009Q2

REPORT INFORMATION
  Report Type: 
  Country: None (occurrence: None)
  Receive Date: 20090625
  Receipt Date: 20090615
  Transmission Date: 20091009
  Serious: Yes (Hospitalization)
  Sender: FDA-Public Use
  Company Number: US-ELI_LILLY_AND_COMPANY-US200903004221

PATIENT
  Sex: Male
  Weight: 91.61 kg

DRUGS (2)
  1. ZYPREXA [Suspect]
     Dosage: 1 D/F, UNK
     Dates: start: 20031001, end: 20060101
  2. ZYPREXA [Suspect]
     Dosage: 5 MG, UNKNOWN
     Dates: start: 20040601, end: 20060101

REACTIONS (12)
  - ANXIETY [None]
  - BLOOD GLUCOSE DECREASED [None]
  - CHEST PAIN [None]
  - DEPRESSION [None]
  - DIABETES MELLITUS [None]
  - DIABETIC COMA [None]
  - DIABETIC KETOACIDOSIS [None]
  - DIZZINESS [None]
  - HYPERGLYCAEMIA [None]
  - OBESITY [None]
  - PANCREATITIS [None]
  - WEIGHT INCREASED [None]
